FAERS Safety Report 21929581 (Version 1)
Quarter: 2023Q1

REPORT INFORMATION
  Report Type: Spontaneous
  Country: CN (occurrence: CN)
  Receive Date: 20230131
  Receipt Date: 20230131
  Transmission Date: 20230418
  Serious: Yes (Other)
  Sender: FDA-Public Use
  Company Number: CN-SUN PHARMACEUTICAL INDUSTRIES LTD-2023R1-375520

PATIENT
  Age: 71 Year
  Sex: Male

DRUGS (5)
  1. GEMCITABINE [Suspect]
     Active Substance: GEMCITABINE
     Indication: Chemotherapy
     Dosage: 160 MILLIGRAM(D1/8)
     Route: 065
     Dates: start: 20211027
  2. GEMCITABINE [Suspect]
     Active Substance: GEMCITABINE
     Dosage: 160 MILLIGRAM(D1/8)
     Route: 065
     Dates: start: 20211123
  3. OXALIPLATIN [Suspect]
     Active Substance: OXALIPLATIN
     Indication: Chemotherapy
     Dosage: 120 MILLIGRAM(D1/8)
     Route: 065
  4. TORIPALIMAB [Suspect]
     Active Substance: TORIPALIMAB
     Indication: Chemotherapy
     Dosage: 200 MG (D1)
     Route: 065
  5. METHYLPREDNISOLONE [Suspect]
     Active Substance: METHYLPREDNISOLONE
     Indication: Immunosuppression
     Dosage: 4 MILLIGRAM/KILOGRAM, DAILY
     Route: 065

REACTIONS (2)
  - Myocarditis [Recovering/Resolving]
  - Therapeutic product effect incomplete [Unknown]
